FAERS Safety Report 8047841-X (Version None)
Quarter: 2012Q1

REPORT INFORMATION
  Report Type: 
  Country: None (occurrence: None)
  Receive Date: 20120116
  Receipt Date: 20120112
  Transmission Date: 20120608
  Serious: Yes (Death, Other)
  Sender: FDA-Public Use
  Company Number: PHHY2011CA95293

PATIENT
  Sex: Male

DRUGS (1)
  1. CLOZARIL [Suspect]
     Dosage: UNK
     Dates: start: 20020101, end: 20111121

REACTIONS (3)
  - CARDIAC DISORDER [None]
  - PNEUMONIA [None]
  - WEIGHT INCREASED [None]
